FAERS Safety Report 8790706 (Version 1)
Quarter: 2012Q4

REPORT INFORMATION
  Report Type: Spontaneous
  Country: US (occurrence: None)
  Receive Date: 20120913
  Receipt Date: 20120913
  Transmission Date: 20130627
  Serious: Yes (Hospitalization, Other)
  Sender: FDA-Public Use
  Company Number: None

PATIENT
  Age: 64 Year
  Sex: Male
  Weight: 87 kg

DRUGS (1)
  1. FEIBA [Suspect]
     Indication: DRUG THERAPY
     Dosage: 57 units/kg once IV
     Dates: start: 20120911, end: 20120911

REACTIONS (2)
  - Aphasia [None]
  - Cerebrovascular accident [None]
